FAERS Safety Report 4830220-3 (Version None)
Quarter: 2005Q4

REPORT INFORMATION
  Report Type: 
  Country: None (occurrence: None)
  Receive Date: 20051115
  Receipt Date: 20051115
  Transmission Date: 20060501
  Serious: Yes (Hospitalization)
  Sender: FDA-Public Use
  Company Number: None

PATIENT
  Age: 29 Year
  Sex: Female
  Weight: 99 kg

DRUGS (15)
  1. TIAGABINE HCL [Suspect]
     Indication: CONVULSION
     Dosage: 32 MG DAILY
  2. VIT E [Concomitant]
  3. CO Q10 [Concomitant]
  4. ACIDOPHILUS [Concomitant]
  5. OXYCONTIN [Concomitant]
  6. BIOXIN [Concomitant]
  7. MULTIVIT [Concomitant]
  8. GLUCOSAMINE [Concomitant]
  9. FISH OIL [Concomitant]
  10. BUSPAR [Concomitant]
  11. NEURONTIN [Concomitant]
  12. REMERON [Concomitant]
  13. ACIPHEX [Concomitant]
  14. LEVORA 0.15/30-21 [Concomitant]
  15. CYMBALTA [Concomitant]

REACTIONS (1)
  - CONVULSION [None]
